FAERS Safety Report 24570392 (Version 2)
Quarter: 2024Q4

REPORT INFORMATION
  Report Type: Spontaneous
  Country: IT (occurrence: IT)
  Receive Date: 20241031
  Receipt Date: 20241106
  Transmission Date: 20250114
  Serious: Yes (Life-Threatening, Hospitalization, Other)
  Sender: MYLAN
  Company Number: IT-PFIZER INC-202400279498

PATIENT
  Age: 47 Year
  Sex: Female

DRUGS (26)
  1. VORICONAZOLE [Suspect]
     Active Substance: VORICONAZOLE
     Indication: Antibiotic therapy
     Dosage: 350 MG EVERY 12 H ON DAY 1, THEN 200 MG EVERY 12 H
     Route: 042
     Dates: start: 20231214
  2. VORICONAZOLE [Suspect]
     Active Substance: VORICONAZOLE
     Indication: Influenza
     Dosage: 350 MG EVERY 12 H ON DAY 1, THEN 200 MG EVERY 12 H
     Route: 042
  3. VORICONAZOLE [Suspect]
     Active Substance: VORICONAZOLE
     Indication: Respiratory failure
     Dosage: 700 MILLIGRAM, QD,(350 MG, 2X/DAY (EVERY 12 H ON DAY 1)
     Route: 042
  4. CASPOFUNGIN [Suspect]
     Active Substance: CASPOFUNGIN
     Indication: Bronchopulmonary aspergillosis
     Dosage: 70 MILLIGRAM, QD(70 MG EVERY 24 H  )
     Route: 065
  5. CASPOFUNGIN [Suspect]
     Active Substance: CASPOFUNGIN
     Indication: Systemic candida
     Dosage: 100 MILLIGRAM, QD
     Route: 065
  6. ISAVUCONAZONIUM SULFATE [Suspect]
     Active Substance: ISAVUCONAZONIUM SULFATE
     Indication: Bronchopulmonary aspergillosis
     Dosage: 200 MILLIGRAM, QD (AFTER THE LOADING DOSE)
     Route: 042
  7. ISAVUCONAZONIUM SULFATE [Suspect]
     Active Substance: ISAVUCONAZONIUM SULFATE
     Dosage: 400 MILLIGRAM, BID (Q12H  )
     Route: 042
  8. AMPHOTERICIN B [Suspect]
     Active Substance: AMPHOTERICIN B
     Indication: Bronchopulmonary aspergillosis
     Dosage: 50 MILLIGRAM, BID (DAY 13, 50 MG EVERY 12 H  )
     Route: 065
  9. MEROPENEM [Concomitant]
     Active Substance: MEROPENEM
     Indication: Antibiotic therapy
     Dosage: UNK
     Route: 065
     Dates: start: 20231214
  10. MEROPENEM [Concomitant]
     Active Substance: MEROPENEM
     Indication: Pneumonia
  11. MEROPENEM [Concomitant]
     Active Substance: MEROPENEM
     Indication: Respiratory failure
  12. MEROPENEM [Concomitant]
     Active Substance: MEROPENEM
     Indication: Lung consolidation
  13. MEROPENEM [Concomitant]
     Active Substance: MEROPENEM
     Indication: Influenza
  14. AMIKACIN [Concomitant]
     Active Substance: AMIKACIN
     Indication: Pneumonia
     Dosage: UNK
     Route: 065
  15. AMIKACIN [Concomitant]
     Active Substance: AMIKACIN
     Indication: Respiratory failure
  16. VANCOMYCIN [Concomitant]
     Active Substance: VANCOMYCIN
     Indication: Antibiotic therapy
     Dosage: UNK
     Route: 065
     Dates: start: 20231214
  17. VANCOMYCIN [Concomitant]
     Active Substance: VANCOMYCIN
     Indication: Lung consolidation
  18. VANCOMYCIN [Concomitant]
     Active Substance: VANCOMYCIN
     Indication: Respiratory failure
  19. VANCOMYCIN [Concomitant]
     Active Substance: VANCOMYCIN
     Indication: Influenza
  20. OSELTAMIVIR [Concomitant]
     Active Substance: OSELTAMIVIR
     Indication: Influenza
     Dosage: UNK
     Route: 065
     Dates: start: 20231214
  21. METHYLPREDNISOLONE [Concomitant]
     Active Substance: METHYLPREDNISOLONE
     Indication: Lung consolidation
     Dosage: 1 DOSAGE FORM, TOTAL, SINGLE DOSE
     Route: 042
     Dates: start: 20231214
  22. METHYLPREDNISOLONE [Concomitant]
     Active Substance: METHYLPREDNISOLONE
     Indication: Influenza
  23. AVIBACTAM SODIUM\CEFTAZIDIME [Concomitant]
     Active Substance: AVIBACTAM SODIUM\CEFTAZIDIME
     Indication: Escherichia infection
     Dosage: UNK
     Route: 065
  24. AVIBACTAM SODIUM\CEFTAZIDIME [Concomitant]
     Active Substance: AVIBACTAM SODIUM\CEFTAZIDIME
     Indication: Klebsiella infection
  25. AZTREONAM [Concomitant]
     Active Substance: AZTREONAM
     Indication: Escherichia infection
     Dosage: UNK
     Route: 065
  26. AZTREONAM [Concomitant]
     Active Substance: AZTREONAM
     Indication: Klebsiella infection

REACTIONS (5)
  - Liver injury [Unknown]
  - Condition aggravated [Unknown]
  - Therapeutic product effect incomplete [Unknown]
  - Drug-induced liver injury [Not Recovered/Not Resolved]
  - Drug ineffective [Unknown]
